FAERS Safety Report 24338457 (Version 3)
Quarter: 2024Q4

REPORT INFORMATION
  Report Type: Spontaneous
  Country: US (occurrence: US)
  Receive Date: 20240919
  Receipt Date: 20241018
  Transmission Date: 20250114
  Serious: No
  Sender: JOHNSON AND JOHNSON
  Company Number: US-JNJFOC-20240933657

PATIENT
  Age: 77 Year
  Sex: Male

DRUGS (1)
  1. CARVYKTI [Suspect]
     Active Substance: CILTACABTAGENE AUTOLEUCEL
     Indication: Product used for unknown indication
     Route: 065
     Dates: start: 20240813

REACTIONS (6)
  - Fatigue [Recovering/Resolving]
  - Poverty of speech [Recovering/Resolving]
  - Ageusia [Recovering/Resolving]
  - Muscle fatigue [Recovering/Resolving]
  - Dysphagia [Recovering/Resolving]
  - Back pain [Recovering/Resolving]

NARRATIVE: CASE EVENT DATE: 20240813
